FAERS Safety Report 7824253-2 (Version None)
Quarter: 2011Q4

REPORT INFORMATION
  Report Type: 
  Country: None (occurrence: None)
  Receive Date: 20111018
  Receipt Date: 20111018
  Transmission Date: 20120403
  Serious: Yes (Hospitalization)
  Sender: FDA-Public Use
  Company Number: None

PATIENT
  Age: 64 Year
  Sex: Male
  Weight: 87.9 kg

DRUGS (1)
  1. SULINDAC [Suspect]
     Indication: PAIN
     Dosage: 200 MG BID PO
     Route: 048
     Dates: start: 20100501, end: 20110901

REACTIONS (1)
  - GASTRIC HAEMORRHAGE [None]
